FAERS Safety Report 16219380 (Version 3)
Quarter: 2019Q2

REPORT INFORMATION
  Report Type: Report from Study
  Country: None (occurrence: NL)
  Receive Date: 20190419
  Receipt Date: 20190607
  Transmission Date: 20190711
  Serious: Yes (Other)
  Sender: FDA-Public Use
  Company Number: NL-ABBVIE-18S-114-2469254-00

PATIENT
  Sex: Female

DRUGS (3)
  1. DUODOPA [Suspect]
     Active Substance: CARBIDOPA\LEVODOPA
     Dosage: MD 5.0 CD 4.4 ED 2.2 NIGHT CD 2.2 ED 2.2
     Route: 050
  2. DUODOPA [Suspect]
     Active Substance: CARBIDOPA\LEVODOPA
     Dosage: DAY PUMP: MD 5.0 ML; CD 4.4 ML/HR; ED 2.2 ML NIGHT PUMP: CD 2.2 ML/HR
     Route: 050
  3. DUODOPA [Suspect]
     Active Substance: CARBIDOPA\LEVODOPA
     Indication: PRODUCT USED FOR UNKNOWN INDICATION
     Dosage: MD 5.0 ML,CD MORNING 4.2ML/U,ED2.2ML CD AFTERN AND EVE4.3OR 4.4 ML/HR,CD NIGHT 2.2 ML/HR
     Route: 050
     Dates: start: 20160928

REACTIONS (17)
  - Stoma site discharge [Not Recovered/Not Resolved]
  - Gait disturbance [Unknown]
  - Deafness [Not Recovered/Not Resolved]
  - Mental impairment [Not Recovered/Not Resolved]
  - Confusional state [Not Recovered/Not Resolved]
  - Hypophagia [Not Recovered/Not Resolved]
  - Loose tooth [Not Recovered/Not Resolved]
  - Weight increased [Recovered/Resolved]
  - Fibroma [Not Recovered/Not Resolved]
  - Communication disorder [Not Recovered/Not Resolved]
  - Hallucination, auditory [Not Recovered/Not Resolved]
  - Thinking abnormal [Not Recovered/Not Resolved]
  - Bradykinesia [Unknown]
  - Incorrect product administration duration [Not Recovered/Not Resolved]
  - Nocturia [Not Recovered/Not Resolved]
  - Toothache [Not Recovered/Not Resolved]
  - Sleep talking [Not Recovered/Not Resolved]
